FAERS Safety Report 9556429 (Version 1)
Quarter: 2013Q3

REPORT INFORMATION
  Report Type: Spontaneous
  Country: IT (occurrence: None)
  Receive Date: 20130819
  Receipt Date: 20130819
  Transmission Date: 20140515
  Serious: Yes (Hospitalization)
  Sender: FDA-Public Use
  Company Number: 13IT006877

PATIENT
  Age: 4 Year
  Sex: Male

DRUGS (4)
  1. PAROXETINE (PAROXETINE) [Suspect]
     Indication: DEPRESSION
     Dosage: 5 DROPS ADMINISTERED INSTEAD OF FORMISTIN, ORAL
     Route: 048
     Dates: start: 20130424, end: 20130424
  2. PAROXETINE (PAROXETINE) [Suspect]
     Indication: INCORRECT DOSE ADMINISTERED
     Dosage: 5 DROPS ADMINISTERED INSTEAD OF FORMISTIN, ORAL
     Route: 048
     Dates: start: 20130424, end: 20130424
  3. FORMISTIN (CETIRIZINE HYDROCHLORIDE) [Suspect]
     Indication: HYPERSENSITIVITY
     Dosage: 10 MG/ML DROPS, ORAL
     Route: 048
     Dates: start: 20130424, end: 20130424
  4. FORMISTIN (CETIRIZINE HYDROCHLORIDE) [Suspect]
     Indication: WRONG DRUG ADMINISTERED
     Dosage: 10 MG/ML DROPS, ORAL
     Route: 048
     Dates: start: 20130424, end: 20130424

REACTIONS (1)
  - Accidental exposure to product [None]
